FAERS Safety Report 15878473 (Version 1)
Quarter: 2019Q1

REPORT INFORMATION
  Report Type: Report from Study
  Country: US (occurrence: US)
  Receive Date: 20190128
  Receipt Date: 20190128
  Transmission Date: 20190417
  Serious: Yes (Hospitalization, Other)
  Sender: FDA-Public Use
  Company Number: US-SAKK-2019SA016974AA

PATIENT
  Age: 57 Year
  Sex: Female

DRUGS (1)
  1. INSULIN GLARGINE [Suspect]
     Active Substance: INSULIN GLARGINE
     Indication: DIABETES MELLITUS
     Dosage: 10 U, QD

REACTIONS (4)
  - Palpitations [Recovered/Resolved]
  - Diabetes mellitus [Unknown]
  - Blood glucose increased [Recovered/Resolved]
  - Atrial fibrillation [Recovered/Resolved]
